FAERS Safety Report 7284125-1 (Version None)
Quarter: 2011Q1

REPORT INFORMATION
  Report Type: 
  Country: None (occurrence: None)
  Receive Date: 20110209
  Receipt Date: 20110128
  Transmission Date: 20110831
  Serious: Yes (Hospitalization, Other)
  Sender: FDA-Public Use
  Company Number: PHHY2010JP63894

PATIENT
  Age: 36 Year
  Sex: Male

DRUGS (9)
  1. PREDNISOLONE [Suspect]
     Dosage: 20 MG, QD
  2. METHYLPREDNISOLONE [Concomitant]
     Dosage: 500 MG, QD
  3. PREDNISOLONE [Suspect]
     Indication: SYSTEMIC LUPUS ERYTHEMATOSUS
     Dosage: 20 MG, QD
     Dates: start: 20100101
  4. METHYLPREDNISOLONE [Concomitant]
     Dosage: 1000 MG, QD
  5. PREDNISOLONE [Suspect]
     Dosage: 0.8 MG/KG
  6. PREDNISOLONE [Suspect]
     Dosage: 40 MG DAILY
  7. NEORAL [Suspect]
     Indication: SYSTEMIC LUPUS ERYTHEMATOSUS
     Dosage: 150 MG/DAY
     Dates: start: 20100101
  8. NEORAL [Suspect]
     Indication: ANAEMIA HAEMOLYTIC AUTOIMMUNE
     Dosage: 200 MG/DAY
  9. PREDNISOLONE [Suspect]
     Dosage: 1 MG/KG/DAY
     Route: 048

REACTIONS (29)
  - BREATH SOUNDS ABNORMAL [None]
  - HEART RATE INCREASED [None]
  - WHITE BLOOD CELL COUNT DECREASED [None]
  - ACUTE LUNG INJURY [None]
  - OXYGEN SATURATION DECREASED [None]
  - GAMMA-GLUTAMYLTRANSFERASE INCREASED [None]
  - COOMBS TEST POSITIVE [None]
  - HAEMOGLOBIN DECREASED [None]
  - BLOOD BILIRUBIN INCREASED [None]
  - INFLUENZA A VIRUS TEST POSITIVE [None]
  - RESPIRATORY RATE INCREASED [None]
  - BLOOD ALKALINE PHOSPHATASE INCREASED [None]
  - COUGH [None]
  - HAEMORRHAGE [None]
  - ANAEMIA HAEMOLYTIC AUTOIMMUNE [None]
  - HAEMATOCRIT DECREASED [None]
  - BLOOD LACTATE DEHYDROGENASE INCREASED [None]
  - H1N1 INFLUENZA [None]
  - RESPIRATORY DISTRESS [None]
  - DIFFUSE ALVEOLAR DAMAGE [None]
  - BLOOD PRESSURE INCREASED [None]
  - ACUTE RESPIRATORY DISTRESS SYNDROME [None]
  - PYREXIA [None]
  - LUNG INFILTRATION [None]
  - C-REACTIVE PROTEIN INCREASED [None]
  - INTERSTITIAL LUNG DISEASE [None]
  - RESPIRATORY TRACT INFLAMMATION [None]
  - PLATELET COUNT DECREASED [None]
  - CELL MARKER INCREASED [None]
